FAERS Safety Report 7799131-8 (Version None)
Quarter: 2011Q4

REPORT INFORMATION
  Report Type: 
  Country: None (occurrence: None)
  Receive Date: 20111006
  Receipt Date: 20110927
  Transmission Date: 20120403
  Serious: Yes (Other)
  Sender: FDA-Public Use
  Company Number: US-PFIZER INC-2011236393

PATIENT
  Sex: Female

DRUGS (4)
  1. NIFEDIPINE [Suspect]
     Dosage: UNK
     Dates: end: 20110627
  2. AMBRISENTAN [Suspect]
     Dosage: UNK
     Dates: end: 20110627
  3. AMBRISENTAN [Suspect]
     Dosage: 10 MG, UNK
     Dates: start: 20110714, end: 20110806
  4. AMBRISENTAN [Suspect]
     Dosage: 5 MG, UNK
     Dates: start: 20110916

REACTIONS (2)
  - GRAVITATIONAL OEDEMA [None]
  - CARDIAC OPERATION [None]
